FAERS Safety Report 17845525 (Version 1)
Quarter: 2020Q2

REPORT INFORMATION
  Report Type: Spontaneous
  Country: US (occurrence: US)
  Receive Date: 20200529
  Receipt Date: 20200529
  Transmission Date: 20200714
  Serious: Yes (Hospitalization)
  Sender: FDA-Public Use
  Company Number: None

PATIENT
  Age: 50 Year
  Sex: Male

DRUGS (1)
  1. COSENTYX [Suspect]
     Active Substance: SECUKINUMAB
     Indication: ANKYLOSING SPONDYLITIS
     Route: 058
     Dates: start: 20200128

REACTIONS (7)
  - Skin discolouration [None]
  - Eye pruritus [None]
  - Localised infection [None]
  - Dermatitis [None]
  - Pruritus [None]
  - Urinary tract infection [None]
  - Haematuria [None]
